FAERS Safety Report 19108374 (Version 1)
Quarter: 2021Q2

REPORT INFORMATION
  Report Type: Spontaneous
  Country: US (occurrence: US)
  Receive Date: 20210408
  Receipt Date: 20210408
  Transmission Date: 20210717
  Serious: No
  Sender: FDA-Public Use
  Company Number: None

PATIENT
  Age: 33 Year
  Sex: Male
  Weight: 72 kg

DRUGS (2)
  1. ATIVAN [Concomitant]
     Active Substance: LORAZEPAM
  2. INVEGA TRINZA [Suspect]
     Active Substance: PALIPERIDONE PALMITATE
     Indication: BIPOLAR DISORDER
     Dosage: ?          QUANTITY:1 INJECTION(S);OTHER FREQUENCY:EVERY 3 MONTHS;?
     Route: 030

REACTIONS (2)
  - Anxiety [None]
  - Suicidal ideation [None]

NARRATIVE: CASE EVENT DATE: 20210301
